FAERS Safety Report 18206606 (Version 1)
Quarter: 2020Q3

REPORT INFORMATION
  Report Type: Other
  Country: CA (occurrence: CA)
  Receive Date: 20200828
  Receipt Date: 20200828
  Transmission Date: 20201103
  Serious: Yes (Death, Other)
  Sender: FDA-Public Use
  Company Number: CA-CELLTRION INC.-2020CA026227

PATIENT

DRUGS (11)
  1. GABAPENTIN. [Suspect]
     Active Substance: GABAPENTIN
     Indication: PRODUCT USED FOR UNKNOWN INDICATION
     Route: 065
  2. DIAZEPAM. [Concomitant]
     Active Substance: DIAZEPAM
     Dosage: 120 MILLIGRAM
     Route: 065
  3. RITUXIMAB (UNKNOWN) [Suspect]
     Active Substance: RITUXIMAB
     Indication: RHEUMATOID ARTHRITIS
     Dosage: 1000 MILLIGRAM
     Route: 042
  4. BENADRYL [Concomitant]
     Active Substance: DIPHENHYDRAMINE HYDROCHLORIDE
     Dosage: 50 MILLIGRAM
     Route: 048
  5. DIPHENHYDRAMINE HYDROCHLORIDE. [Concomitant]
     Active Substance: DIPHENHYDRAMINE HYDROCHLORIDE
     Indication: PREMEDICATION
     Dosage: 50 MILLIGRAM
     Route: 048
  6. FOLIC ACID. [Concomitant]
     Active Substance: FOLIC ACID
  7. METHOTREXATE. [Concomitant]
     Active Substance: METHOTREXATE
  8. METHYLPREDNISOLONE. [Concomitant]
     Active Substance: METHYLPREDNISOLONE
     Indication: PREMEDICATION
     Dosage: 100 MILLIGRAM
     Route: 042
  9. ACETAMINOPHEN. [Concomitant]
     Active Substance: ACETAMINOPHEN
     Indication: PREMEDICATION
     Dosage: 650 MILLIGRAM
     Route: 048
  10. OXYNEO [Concomitant]
     Active Substance: OXYCODONE
     Dosage: UNK (1 EVERY 1 DAYS)
     Route: 065
  11. RITUXIMAB (UNKNOWN) [Suspect]
     Active Substance: RITUXIMAB
     Indication: EHLERS-DANLOS SYNDROME
     Dosage: UNK
     Route: 065

REACTIONS (18)
  - Anxiety [Fatal]
  - Headache [Fatal]
  - Hypotension [Fatal]
  - Paraesthesia [Fatal]
  - Drug ineffective [Fatal]
  - Fibromyalgia [Fatal]
  - Heart rate increased [Fatal]
  - Rheumatoid arthritis [Fatal]
  - Diarrhoea [Fatal]
  - Infusion related reaction [Fatal]
  - Off label use [Fatal]
  - Blood pressure decreased [Fatal]
  - Completed suicide [Fatal]
  - Rash [Fatal]
  - Dehydration [Fatal]
  - Pain [Fatal]
  - Vomiting [Fatal]
  - Chest pain [Fatal]
